FAERS Safety Report 10541770 (Version 3)
Quarter: 2014Q4

REPORT INFORMATION
  Report Type: Report from Study
  Country: US (occurrence: US)
  Receive Date: 20141024
  Receipt Date: 20141105
  Transmission Date: 20150529
  Serious: Yes (Death, Hospitalization, Other)
  Sender: FDA-Public Use
  Company Number: GXBR2014US001852

PATIENT
  Age: 66 Year
  Sex: Male
  Weight: 94.69 kg

DRUGS (3)
  1. CHEMOTHERAPEUTICS NOS [Concomitant]
     Active Substance: UNSPECIFIED INGREDIENT
     Indication: HEPATIC CANCER
     Dosage: UNK DF, UNK
  2. ENOXAPARIN SODIUM. [Suspect]
     Active Substance: ENOXAPARIN SODIUM
     Indication: DEEP VEIN THROMBOSIS
     Dosage: 80 MG, Q12H
     Route: 058
     Dates: start: 20140618, end: 20141008
  3. ENOXAPARIN SODIUM. [Suspect]
     Active Substance: ENOXAPARIN SODIUM
     Indication: SPLENIC INFARCTION
     Dosage: 80 MG, BID
     Route: 058

REACTIONS (5)
  - Malignant neoplasm progression [Fatal]
  - Infection [Recovered/Resolved]
  - Anaemia [Unknown]
  - Pyrexia [Recovered/Resolved]
  - Ascites [Unknown]

NARRATIVE: CASE EVENT DATE: 20140806
